FAERS Safety Report 10489259 (Version 1)
Quarter: 2014Q4

REPORT INFORMATION
  Report Type: Spontaneous
  Country: AU (occurrence: AU)
  Receive Date: 20141002
  Receipt Date: 20141002
  Transmission Date: 20150528
  Serious: Yes (Other)
  Sender: FDA-Public Use
  Company Number: AU-009507513-1409AUS011956

PATIENT
  Age: 73 Year
  Sex: Female

DRUGS (2)
  1. CELESTONE [Suspect]
     Active Substance: BETAMETHASONE
     Indication: PAIN
     Dosage: 1 MILLILITRE ONE TIME
     Dates: start: 20140715, end: 20140715
  2. NAROPIN [Suspect]
     Active Substance: ROPIVACAINE HYDROCHLORIDE
     Indication: PAIN
     Dosage: 1 MILLILITRE ONE TIME
     Dates: start: 20140715, end: 20140715

REACTIONS (2)
  - Headache [Not Recovered/Not Resolved]
  - Rash [Not Recovered/Not Resolved]

NARRATIVE: CASE EVENT DATE: 20140715
